FAERS Safety Report 5294844-4 (Version None)
Quarter: 2007Q2

REPORT INFORMATION
  Report Type: 
  Country: None (occurrence: None)
  Receive Date: 20070412
  Receipt Date: 20070410
  Transmission Date: 20071010
  Serious: Yes (Hospitalization)
  Sender: FDA-Public Use
  Company Number: 2007SE01930

PATIENT
  Age: 27931 Day
  Sex: Female
  Weight: 146 kg

DRUGS (5)
  1. BLOPRESS [Suspect]
     Route: 048
  2. LOCHOL [Suspect]
     Indication: HYPERCHOLESTEROLAEMIA
     Route: 048
     Dates: start: 20010705
  3. LOCHOL [Suspect]
     Route: 048
     Dates: end: 20060325
  4. NORVASC [Suspect]
     Route: 048
  5. ACINON [Concomitant]
     Route: 048

REACTIONS (2)
  - BLOOD PRESSURE INCREASED [None]
  - THROMBOTIC STROKE [None]
